FAERS Safety Report 16398415 (Version 1)
Quarter: 2019Q2

REPORT INFORMATION
  Report Type: Report from Study
  Country: CA (occurrence: CA)
  Receive Date: 20190606
  Receipt Date: 20190606
  Transmission Date: 20190711
  Serious: Yes (Hospitalization)
  Sender: FDA-Public Use
  Company Number: CA-PFIZER INC-2019237340

PATIENT
  Sex: Female
  Weight: 3.18 kg

DRUGS (2)
  1. REMICADE [Suspect]
     Active Substance: INFLIXIMAB
     Indication: FOETAL EXPOSURE DURING PREGNANCY
     Dosage: 400 MG, UNK (1 EVERY 7 WEEKS)
     Route: 064
  2. COLESTID [Suspect]
     Active Substance: COLESTIPOL HYDROCHLORIDE
     Indication: FOETAL EXPOSURE DURING PREGNANCY
     Dosage: UNK, 3X/DAY (3 EVERY 1 DAY(S))
     Route: 064

REACTIONS (3)
  - Foetal exposure during pregnancy [Unknown]
  - Neonatal aspiration [Unknown]
  - Apgar score low [Unknown]
